FAERS Safety Report 20121134 (Version 1)
Quarter: 2021Q4

REPORT INFORMATION
  Report Type: Report from Study
  Country: IT (occurrence: IT)
  Receive Date: 20211127
  Receipt Date: 20211127
  Transmission Date: 20220303
  Serious: Yes (Hospitalization)
  Sender: FDA-Public Use
  Company Number: None

PATIENT
  Age: 85 Year
  Sex: Male

DRUGS (10)
  1. AZACITIDINE [Suspect]
     Active Substance: AZACITIDINE
     Indication: Product used for unknown indication
     Dates: start: 20210101, end: 20210808
  2. ARIXTRA [Suspect]
     Active Substance: FONDAPARINUX SODIUM
     Indication: Product used for unknown indication
     Dosage: 1.5 MG / 0.3 ML SOLUTION FOR INJECTION, PRE-FILLED SYRINGE
  3. SODIUM CARBONATE [Concomitant]
     Active Substance: SODIUM CARBONATE
  4. SILODOSIN [Concomitant]
     Active Substance: SILODOSIN
     Dosage: 8 MG HARD CAPSULES
  5. ALLOPURINOL [Concomitant]
     Active Substance: ALLOPURINOL
  6. IDRACAL [Concomitant]
     Dosage: 1000 MG EFFERVESCENT TABLETS
  7. LASIX [Concomitant]
     Active Substance: FUROSEMIDE
     Dosage: 25 MG TABLETS
  8. DUTASTERIDE [Concomitant]
     Active Substance: DUTASTERIDE
  9. LANOXIN [Concomitant]
     Active Substance: DIGOXIN
     Dosage: 0.125 MG TABLETS
  10. BISOPROLOL FUMARATE [Concomitant]
     Active Substance: BISOPROLOL FUMARATE

REACTIONS (1)
  - Coma [Not Recovered/Not Resolved]

NARRATIVE: CASE EVENT DATE: 20210808
